FAERS Safety Report 11800718 (Version 2)
Quarter: 2015Q4

REPORT INFORMATION
  Report Type: Spontaneous
  Country: IT (occurrence: IT)
  Receive Date: 20151204
  Receipt Date: 20151207
  Transmission Date: 20160305
  Serious: Yes (Hospitalization)
  Sender: FDA-Public Use
  Company Number: ALCN2015IT007407

PATIENT
  Age: 72 Year
  Sex: Female

DRUGS (6)
  1. TOBRAMYCIN. [Suspect]
     Active Substance: TOBRAMYCIN
     Indication: CORNEAL OPACITY
  2. VANCOMYCIN [Suspect]
     Active Substance: VANCOMYCIN
     Indication: CORNEAL OPACITY
  3. MEROPENEM. [Suspect]
     Active Substance: MEROPENEM
     Indication: CORNEAL OPACITY
  4. MEROPENEM. [Suspect]
     Active Substance: MEROPENEM
     Indication: VISUAL ACUITY REDUCED
     Dosage: UNK
     Route: 042
  5. TOBRAMYCIN. [Suspect]
     Active Substance: TOBRAMYCIN
     Indication: VISUAL ACUITY REDUCED
     Dosage: 1 GTT, QH
     Route: 047
  6. VANCOMYCIN [Suspect]
     Active Substance: VANCOMYCIN
     Indication: VISUAL ACUITY REDUCED
     Dosage: 1 GTT, QH
     Route: 047

REACTIONS (3)
  - Condition aggravated [Unknown]
  - Corneal perforation [Unknown]
  - Iridocele [Unknown]
